FAERS Safety Report 8119659-0 (Version None)
Quarter: 2012Q1

REPORT INFORMATION
  Report Type: 
  Country: None (occurrence: None)
  Receive Date: 20120207
  Receipt Date: 20120127
  Transmission Date: 20120608
  Serious: Yes (Hospitalization, Disabling)
  Sender: FDA-Public Use
  Company Number: US-MERCK-1108USA00606

PATIENT
  Age: 54 Year
  Sex: Female
  Weight: 61 kg

DRUGS (2)
  1. FOSAMAX [Suspect]
     Indication: OSTEOPENIA
     Route: 048
     Dates: start: 20011108, end: 20020101
  2. ALENDRONATE SODIUM [Suspect]
     Indication: OSTEOPENIA
     Route: 048
     Dates: start: 20080329, end: 20090724

REACTIONS (11)
  - SPONDYLOLISTHESIS [None]
  - OSTEOPOROSIS [None]
  - BACTERIAL INFECTION [None]
  - HYPERCHOLESTEROLAEMIA [None]
  - BACK PAIN [None]
  - RADICULOPATHY [None]
  - FEMUR FRACTURE [None]
  - PAIN IN EXTREMITY [None]
  - ANXIETY [None]
  - ARTHRITIS [None]
  - SPINAL COLUMN STENOSIS [None]
